FAERS Safety Report 7443541-5 (Version None)
Quarter: 2011Q2

REPORT INFORMATION
  Report Type: 
  Country: None (occurrence: None)
  Receive Date: 20110420
  Receipt Date: 20110407
  Transmission Date: 20111010
  Serious: Yes (Other)
  Sender: FDA-Public Use
  Company Number: 030813

PATIENT
  Sex: Female

DRUGS (11)
  1. PLAQUENIL [Concomitant]
  2. PARIET [Concomitant]
  3. FOLIC ACID [Concomitant]
  4. CITALOPRAM HYDROBROMIDE [Concomitant]
  5. VITAMIN D [Concomitant]
  6. CIMZIA [Suspect]
     Indication: RHEUMATOID ARTHRITIS
     Dosage: 200 MG 1X/2 WEEKS SUBCUTANEOUS
     Route: 058
     Dates: start: 20100112
  7. CALCIUM [Concomitant]
  8. SULFASALAZINE [Concomitant]
  9. METHOTREXATE [Concomitant]
  10. OXYCODONE [Concomitant]
  11. NABUMETONE [Concomitant]

REACTIONS (2)
  - THERAPEUTIC RESPONSE DECREASED [None]
  - PNEUMONIA [None]
